FAERS Safety Report 10078513 (Version 2)
Quarter: 2014Q2

REPORT INFORMATION
  Report Type: Spontaneous
  Country: JP (occurrence: JP)
  Receive Date: 20140415
  Receipt Date: 20140415
  Transmission Date: 20141212
  Serious: Yes (Death, Hospitalization)
  Sender: FDA-Public Use
  Company Number: JP-JNJFOC-20140214148

PATIENT
  Age: 70 Year
  Sex: Male
  Weight: 67 kg

DRUGS (19)
  1. REMICADE [Suspect]
     Indication: RHEUMATOID ARTHRITIS
     Route: 042
     Dates: start: 20130819
  2. REMICADE [Suspect]
     Indication: RHEUMATOID ARTHRITIS
     Dosage: FOURTH DOSE
     Route: 042
     Dates: start: 20131128
  3. RHEUMATREX [Suspect]
     Indication: RHEUMATOID ARTHRITIS
     Route: 048
     Dates: start: 20110809, end: 20140101
  4. PREDNISOLONE [Suspect]
     Indication: RHEUMATOID ARTHRITIS
     Route: 048
     Dates: start: 20100402
  5. ISONIAZID [Concomitant]
     Route: 048
  6. GASTER [Concomitant]
     Indication: GASTRIC ULCER
     Route: 048
     Dates: start: 20100402
  7. FOLIAMIN [Concomitant]
     Route: 048
     Dates: start: 20121024, end: 20140105
  8. CELECOX [Concomitant]
     Indication: RHEUMATOID ARTHRITIS
     Route: 048
     Dates: start: 20130523
  9. ISCOTIN [Concomitant]
     Route: 048
     Dates: start: 20130819, end: 20140110
  10. TOWAMIN [Concomitant]
     Indication: HYPERTENSION
     Route: 048
  11. ALLYLESTRENOL [Concomitant]
     Indication: HYPERLIPIDAEMIA
     Route: 048
  12. EQUA (VILDAGLIPTIN) [Concomitant]
     Indication: DIABETES MELLITUS
     Route: 048
  13. FERROMIA [Concomitant]
     Indication: ANAEMIA
     Route: 048
  14. URSODEOXYCHOLIC ACID [Concomitant]
     Indication: LIVER DISORDER
     Route: 048
  15. CALBLOCK [Concomitant]
     Indication: HYPERTENSION
     Route: 048
  16. RITUXAN [Concomitant]
     Route: 065
     Dates: start: 20090722, end: 20091127
  17. ENDOXAN [Concomitant]
     Route: 065
     Dates: start: 20090722, end: 20091127
  18. EPIRUBICIN HYDROCHLORIDE [Concomitant]
     Route: 065
     Dates: start: 20090722, end: 20091127
  19. ONCOVIN [Concomitant]
     Route: 065
     Dates: start: 20090722, end: 20091127

REACTIONS (1)
  - Pneumocystis jirovecii pneumonia [Fatal]
